FAERS Safety Report 8915666 (Version 1)
Quarter: 2012Q4

REPORT INFORMATION
  Report Type: 
  Country: US (occurrence: US)
  Receive Date: 20121119
  Receipt Date: 20121119
  Transmission Date: 20130627
  Serious: Yes (Hospitalization)
  Sender: FDA-Public Use
  Company Number: US-SHIRE-ALL1-2012-05548

PATIENT
  Sex: Male
  Weight: 39 kg

DRUGS (6)
  1. VYVANSE [Suspect]
     Indication: PRODUCT USED FOR UNKNOWN INDICATION
     Dosage: UNK UNK, 1x/day:qd
     Route: 048
     Dates: start: 201009, end: 201011
  2. INTUNIV [Suspect]
     Indication: ATTENTION DEFICIT/HYPERACTIVITY DISORDER
     Dosage: 2 mg, 1x/day:qd
     Route: 048
     Dates: start: 20121108
  3. INTUNIV [Suspect]
     Dosage: 1 mg, 1x/day:qd
     Route: 048
     Dates: start: 20121101, end: 20121107
  4. BUPROPION [Concomitant]
     Indication: ATTENTION DEFICIT/HYPERACTIVITY DISORDER
     Dosage: 150 mg, 1x/day:qd
     Route: 048
     Dates: start: 2010
  5. ZYRTEC [Concomitant]
     Indication: SEASONAL ALLERGY
     Dosage: UNK, 1x/day:qd
     Route: 048
     Dates: start: 201208
  6. RISPERIDONE [Concomitant]
     Indication: ATTENTION DEFICIT/HYPERACTIVITY DISORDER
     Dosage: 0.5 mg, 1x/day:qd
     Route: 065
     Dates: start: 201011

REACTIONS (4)
  - Hallucinations, mixed [Not Recovered/Not Resolved]
  - Mental impairment [Unknown]
  - Throat irritation [Not Recovered/Not Resolved]
  - Anger [Not Recovered/Not Resolved]
